FAERS Safety Report 16827292 (Version 1)
Quarter: 2019Q3

REPORT INFORMATION
  Report Type: Report from Study
  Country: None (occurrence: NZ)
  Receive Date: 20190919
  Receipt Date: 20190919
  Transmission Date: 20191005
  Serious: Yes (Other)
  Sender: FDA-Public Use
  Company Number: NZ-ABBVIE-19K-118-2922250-00

PATIENT
  Age: 66 Year
  Sex: Female

DRUGS (1)
  1. HUMIRA [Suspect]
     Active Substance: ADALIMUMAB
     Indication: RHEUMATOID ARTHRITIS
     Route: 058
     Dates: start: 20190911

REACTIONS (4)
  - Back pain [Unknown]
  - Suicidal ideation [Unknown]
  - Depressed mood [Unknown]
  - Dry skin [Unknown]

NARRATIVE: CASE EVENT DATE: 20190911
